FAERS Safety Report 4690039-3 (Version None)
Quarter: 2005Q2

REPORT INFORMATION
  Report Type: 
  Country: None (occurrence: None)
  Receive Date: 20050614
  Receipt Date: 20050531
  Transmission Date: 20051028
  Serious: Yes (Hospitalization)
  Sender: FDA-Public Use
  Company Number: 2005082280

PATIENT
  Age: 84 Year
  Sex: Female

DRUGS (6)
  1. ATARAX [Suspect]
     Indication: ILL-DEFINED DISORDER
     Dates: start: 20050413
  2. HEPARIN SODIUM [Concomitant]
     Indication: ILL-DEFINED DISORDER
  3. ACEBUTOLOL HCL [Suspect]
     Indication: ILL-DEFINED DISORDER
  4. CIMETIDINE [Suspect]
     Indication: ILL-DEFINED DISORDER
  5. CLOPIDOGREL BISULFATE [Concomitant]
     Indication: ILL-DEFINED DISORDER
  6. PRAVASTATIN [Suspect]
     Indication: ILL-DEFINED DISORDER

REACTIONS (3)
  - DERMATITIS BULLOUS [None]
  - ERYTHEMA [None]
  - FIXED ERUPTION [None]
